FAERS Safety Report 17752928 (Version 2)
Quarter: 2022Q2

REPORT INFORMATION
  Report Type: Spontaneous
  Country: CA (occurrence: CA)
  Receive Date: 20200506
  Receipt Date: 20220620
  Transmission Date: 20220720
  Serious: Yes (Hospitalization, Other)
  Sender: FDA-Public Use
  Company Number: CA-BAUSCH-BL-2020-013100

PATIENT
  Age: 80 Year
  Sex: Female

DRUGS (10)
  1. ALBUTEROL [Suspect]
     Active Substance: ALBUTEROL
     Indication: Product used for unknown indication
     Route: 065
  2. ALBUTEROL [Suspect]
     Active Substance: ALBUTEROL
     Route: 065
  3. ALVESCO [Suspect]
     Active Substance: CICLESONIDE
     Indication: Product used for unknown indication
     Dosage: METERED DOSE
  4. ALVESCO [Suspect]
     Active Substance: CICLESONIDE
     Dosage: METERED DOSE
  5. ATROVENT [Suspect]
     Active Substance: IPRATROPIUM BROMIDE
     Indication: Product used for unknown indication
     Route: 065
  6. ATROVENT [Suspect]
     Active Substance: IPRATROPIUM BROMIDE
     Route: 065
  7. BUDESONIDE [Suspect]
     Active Substance: BUDESONIDE
     Indication: Product used for unknown indication
  8. BUDESONIDE [Suspect]
     Active Substance: BUDESONIDE
  9. OLODATEROL HYDROCHLORIDE\TIOTROPIUM BROMIDE MONOHYDRATE [Suspect]
     Active Substance: OLODATEROL HYDROCHLORIDE\TIOTROPIUM BROMIDE MONOHYDRATE
     Indication: Product used for unknown indication
     Route: 065
  10. OLODATEROL HYDROCHLORIDE\TIOTROPIUM BROMIDE MONOHYDRATE [Suspect]
     Active Substance: OLODATEROL HYDROCHLORIDE\TIOTROPIUM BROMIDE MONOHYDRATE
     Route: 065

REACTIONS (16)
  - Asthma [Unknown]
  - Cardiac disorder [Unknown]
  - Dyspnoea [Unknown]
  - Frustration tolerance decreased [Unknown]
  - Gait disturbance [Unknown]
  - Hypothyroidism [Unknown]
  - Loss of personal independence in daily activities [Unknown]
  - Malaise [Unknown]
  - Oropharyngeal discomfort [Unknown]
  - Pneumonitis [Unknown]
  - Respiration abnormal [Unknown]
  - Sleep disorder due to a general medical condition [Unknown]
  - Ventricular failure [Unknown]
  - Cough [Unknown]
  - Wheezing [Unknown]
  - Chest discomfort [Unknown]
